FAERS Safety Report 7488053-8 (Version None)
Quarter: 2011Q2

REPORT INFORMATION
  Report Type: 
  Country: None (occurrence: None)
  Receive Date: 20110518
  Receipt Date: 20110516
  Transmission Date: 20111010
  Serious: Yes (Other)
  Sender: FDA-Public Use
  Company Number: US-PFIZER INC-2011023116

PATIENT
  Sex: Female

DRUGS (2)
  1. CHANTIX [Suspect]
     Indication: SMOKING CESSATION THERAPY
     Dosage: UNK
     Dates: start: 20090401, end: 20090601
  2. LOESTRIN 1.5/30 [Concomitant]
     Indication: CONTRACEPTION
     Dosage: UNK
     Dates: start: 20040101, end: 20100601

REACTIONS (9)
  - DEPRESSION [None]
  - ANXIETY [None]
  - HOMICIDAL IDEATION [None]
  - ABNORMAL DREAMS [None]
  - AGGRESSION [None]
  - IRRITABILITY [None]
  - INSOMNIA [None]
  - SUICIDAL IDEATION [None]
  - LOSS OF CONSCIOUSNESS [None]
